FAERS Safety Report 21472782 (Version 2)
Quarter: 2022Q4

REPORT INFORMATION
  Report Type: Spontaneous
  Country: BR (occurrence: BR)
  Receive Date: 20221018
  Receipt Date: 20221121
  Transmission Date: 20230113
  Serious: Yes (Other)
  Sender: FDA-Public Use
  Company Number: BR-BRISTOL-MYERS SQUIBB COMPANY-2022-122901

PATIENT
  Age: 73 Year
  Sex: Female
  Weight: 60 kg

DRUGS (2)
  1. ELIQUIS [Suspect]
     Active Substance: APIXABAN
     Indication: Cerebrovascular accident prophylaxis
     Route: 065
     Dates: start: 202203, end: 202204
  2. ELIQUIS [Suspect]
     Active Substance: APIXABAN
     Route: 065
     Dates: start: 202204

REACTIONS (4)
  - Haemorrhage [Recovered/Resolved]
  - Immunodeficiency [Recovered/Resolved]
  - Herpes zoster [Recovered/Resolved]
  - Influenza [Recovered/Resolved]

NARRATIVE: CASE EVENT DATE: 20220401
